FAERS Safety Report 20826780 (Version 1)
Quarter: 2022Q2

REPORT INFORMATION
  Report Type: Spontaneous
  Country: US (occurrence: None)
  Receive Date: 20220513
  Receipt Date: 20220513
  Transmission Date: 20220721
  Serious: Yes (Hospitalization)
  Sender: FDA-Public Use
  Company Number: 2022A176969

PATIENT
  Sex: Male
  Weight: 103.4 kg

DRUGS (1)
  1. BRILINTA [Suspect]
     Active Substance: TICAGRELOR
     Indication: Stent placement
     Route: 048

REACTIONS (2)
  - Haemorrhage [Recovered/Resolved]
  - Aortic aneurysm [Unknown]
